FAERS Safety Report 9318293 (Version 2)
Quarter: 2014Q3

REPORT INFORMATION
  Report Type: Spontaneous
  Country: GB (occurrence: None)
  Receive Date: 20130524
  Receipt Date: 20140903
  Transmission Date: 20150326
  Serious: Yes (Disabling, Other)
  Sender: FDA-Public Use
  Company Number: FK201301599

PATIENT
  Age: 52 Year
  Sex: Female

DRUGS (7)
  1. FUROSEMIDE. [Suspect]
     Active Substance: FUROSEMIDE
     Indication: OEDEMA PERIPHERAL
     Dates: start: 2011
  2. BISOPROLOL (BISOPROLOL) [Concomitant]
  3. CHLORHEXIDINE (CHLORHEXIDINE) [Concomitant]
  4. AMISULPRIDE [Suspect]
     Active Substance: AMISULPRIDE
     Indication: SCHIZOPHRENIA, PARANOID TYPE
     Dates: start: 201106
  5. TERBINAFINE (TERBINAFINE) [Concomitant]
     Active Substance: TERBINAFINE
  6. ZAPONEX [Suspect]
     Active Substance: CLOZAPINE
     Indication: SCHIZOPHRENIA, PARANOID TYPE
     Route: 048
     Dates: start: 20110921
  7. CLEXANE (ENOXAPARIN SODIUM) [Concomitant]
     Active Substance: ENOXAPARIN SODIUM

REACTIONS (23)
  - Oedema peripheral [None]
  - Lower limb fracture [None]
  - Pain [None]
  - Ear infection [None]
  - Choking [None]
  - Incorrect dose administered [None]
  - Sinus tachycardia [None]
  - Vomiting [None]
  - Abnormal loss of weight [None]
  - Abscess limb [None]
  - Vaginal haemorrhage [None]
  - Parkinsonism [None]
  - Escherichia urinary tract infection [None]
  - Hypoacusis [None]
  - Cognitive disorder [None]
  - Right atrial dilatation [None]
  - Bundle branch block left [None]
  - Glucose tolerance impaired [None]
  - Iatrogenic injury [None]
  - Atrial fibrillation [None]
  - Speech disorder [None]
  - Wrong drug administered [None]
  - Cerebral atrophy [None]

NARRATIVE: CASE EVENT DATE: 2013
